FAERS Safety Report 7719068-X (Version None)
Quarter: 2011Q3

REPORT INFORMATION
  Report Type: 
  Country: None (occurrence: None)
  Receive Date: 20110830
  Receipt Date: 20110825
  Transmission Date: 20111222
  Serious: Yes (Life-Threatening, Hospitalization, Other)
  Sender: FDA-Public Use
  Company Number: US-MERCK-1105USA01805

PATIENT
  Age: 57 Year
  Sex: Female

DRUGS (1)
  1. FOSAMAX [Suspect]
     Route: 048
     Dates: start: 20090619, end: 20110307

REACTIONS (4)
  - BRONCHITIS [None]
  - FOREIGN BODY [None]
  - PRODUCT LABEL ISSUE [None]
  - FOREIGN BODY ASPIRATION [None]
